FAERS Safety Report 6154605-0 (Version None)
Quarter: 2009Q2

REPORT INFORMATION
  Report Type: 
  Country: None (occurrence: None)
  Receive Date: 20090414
  Receipt Date: 20090331
  Transmission Date: 20091009
  Serious: Yes (Death)
  Sender: FDA-Public Use
  Company Number: JP-ROCHE-625537

PATIENT
  Sex: Male

DRUGS (14)
  1. MYCOPHENOLATE MOFETIL [Suspect]
     Indication: GRAFT VERSUS HOST DISEASE
     Route: 048
     Dates: start: 20060518, end: 20060620
  2. PREDONINE [Concomitant]
     Dosage: NOTE: 10-60 MG
     Route: 041
     Dates: start: 20060327, end: 20060914
  3. PROGRAF [Concomitant]
     Dosage: NOTE: 0.5-3MG
     Route: 048
     Dates: start: 20060515, end: 20060601
  4. PROGRAF [Concomitant]
     Route: 041
     Dates: start: 20060606, end: 20060723
  5. GASTER [Concomitant]
     Route: 041
     Dates: start: 20060324, end: 20061028
  6. PRODIF [Concomitant]
     Route: 041
     Dates: start: 20060417, end: 20060525
  7. ADONA [Concomitant]
     Dosage: NOTE: 100-300 MG
     Route: 041
     Dates: start: 20060423, end: 20070107
  8. ACYCLOVIR [Concomitant]
     Route: 041
     Dates: start: 20060427, end: 20060520
  9. FIRSTCIN [Concomitant]
     Route: 041
     Dates: start: 20060515, end: 20060529
  10. DENOSINE [Concomitant]
     Route: 041
     Dates: start: 20060520, end: 20060815
  11. FUNGUARD [Concomitant]
     Route: 041
     Dates: start: 20060526, end: 20060815
  12. METILON [Concomitant]
     Route: 041
     Dates: start: 20060527, end: 20060529
  13. MEROPEN [Concomitant]
     Route: 041
     Dates: start: 20060529, end: 20060609
  14. VANCOMYCIN HCL [Concomitant]
     Route: 041
     Dates: start: 20060601, end: 20060609

REACTIONS (4)
  - ALANINE AMINOTRANSFERASE INCREASED [None]
  - BLOOD UREA INCREASED [None]
  - DEATH [None]
  - WHITE BLOOD CELL COUNT DECREASED [None]
